FAERS Safety Report 8512141-8 (Version None)
Quarter: 2012Q3

REPORT INFORMATION
  Report Type: 
  Country: None (occurrence: None)
  Receive Date: 20120716
  Receipt Date: 20120705
  Transmission Date: 20120928
  Serious: Yes (Death, Hospitalization)
  Sender: FDA-Public Use
  Company Number: NL-CELGENEUS-114-21880-12063286

PATIENT
  Sex: Female

DRUGS (3)
  1. VIDAZA [Suspect]
     Route: 050
  2. REVLIMID [Suspect]
     Indication: ACUTE MYELOID LEUKAEMIA
     Route: 048
  3. HYDREA [Concomitant]
     Route: 065

REACTIONS (2)
  - PULMONARY SEPSIS [None]
  - ACUTE MYELOID LEUKAEMIA [None]
